FAERS Safety Report 5700628-2 (Version None)
Quarter: 2008Q2

REPORT INFORMATION
  Report Type: 
  Country: None (occurrence: None)
  Receive Date: 20080409
  Receipt Date: 20080409
  Transmission Date: 20081010
  Serious: Yes (Other)
  Sender: FDA-Public Use
  Company Number: None

PATIENT
  Age: 7 Year
  Sex: Female
  Weight: 18.5975 kg

DRUGS (1)
  1. NASONEX [Suspect]
     Indication: HYPERSENSITIVITY
     Dosage: 1 SPRAY EACH NOSTRIL ONCE A DAY NASAL
     Route: 045
     Dates: start: 20080320, end: 20080325

REACTIONS (8)
  - AGGRESSION [None]
  - CRYING [None]
  - EDUCATIONAL PROBLEM [None]
  - MOOD ALTERED [None]
  - NIGHTMARE [None]
  - PERSONALITY CHANGE [None]
  - SELF-INJURIOUS IDEATION [None]
  - THINKING ABNORMAL [None]
